FAERS Safety Report 25736028 (Version 1)
Quarter: 2025Q3

REPORT INFORMATION
  Report Type: Spontaneous
  Country: US (occurrence: US)
  Receive Date: 20250828
  Receipt Date: 20250828
  Transmission Date: 20251020
  Serious: No
  Sender: Unknown Manufacturer
  Company Number: US-THERATECHNOLOGIES INC.-2025-THE-IBA-000218

PATIENT

DRUGS (2)
  1. TROGARZO [Suspect]
     Active Substance: IBALIZUMAB-UIYK
     Indication: HIV infection
     Route: 042
     Dates: start: 20250729, end: 20250729
  2. TROGARZO [Suspect]
     Active Substance: IBALIZUMAB-UIYK
     Route: 042

REACTIONS (1)
  - Pollakiuria [Not Recovered/Not Resolved]
